FAERS Safety Report 9300735 (Version 2)
Quarter: 2013Q2

REPORT INFORMATION
  Report Type: Spontaneous
  Country: ES (occurrence: ES)
  Receive Date: 20130521
  Receipt Date: 20130530
  Transmission Date: 20140414
  Serious: Yes (Other)
  Sender: FDA-Public Use
  Company Number: ES-PFIZER INC-2013149289

PATIENT
  Age: 13 Year
  Sex: Male

DRUGS (1)
  1. GENOTONORM [Suspect]
     Indication: HYPOTHALAMO-PITUITARY DISORDER
     Dosage: 1 MG, UNK
     Route: 058
     Dates: start: 20130326, end: 20130502

REACTIONS (4)
  - Intracranial pressure increased [Unknown]
  - Papilloedema [Unknown]
  - Headache [Unknown]
  - Arthralgia [Unknown]
